FAERS Safety Report 5055511-5 (Version None)
Quarter: 2006Q3

REPORT INFORMATION
  Report Type: 
  Country: None (occurrence: None)
  Receive Date: 20060719
  Receipt Date: 20060629
  Transmission Date: 20061208
  Serious: Yes (Congenital Anomaly)
  Sender: FDA-Public Use
  Company Number: US-MERCK-0606USA05760

PATIENT
  Age: 0 Day
  Sex: Male

DRUGS (2)
  1. SINGULAIR [Suspect]
     Indication: ASTHMA
     Dates: start: 20030101
  2. ALBUTEROL [Concomitant]

REACTIONS (1)
  - POLYDACTYLY [None]
